FAERS Safety Report 7526677-X (Version None)
Quarter: 2011Q2

REPORT INFORMATION
  Report Type: 
  Country: None (occurrence: None)
  Receive Date: 20110606
  Receipt Date: 20110531
  Transmission Date: 20111010
  Serious: Yes (Other)
  Sender: FDA-Public Use
  Company Number: HU-PFIZER INC-2011119340

PATIENT
  Age: 62 Year
  Sex: Female
  Weight: 65 kg

DRUGS (3)
  1. ATORVASTATIN CALCIUM [Suspect]
     Dosage: 1 TABLET DAILY
     Dates: start: 20110401
  2. ATORVASTATIN CALCIUM [Suspect]
     Dosage: 0.5 TABLET DAILY
  3. VITAMIN B COMPLEX CAP [Concomitant]
     Dosage: UNK

REACTIONS (3)
  - HYPERHIDROSIS [None]
  - EYE PAIN [None]
  - DIZZINESS [None]
